FAERS Safety Report 6251474-5 (Version None)
Quarter: 2009Q2

REPORT INFORMATION
  Report Type: 
  Country: None (occurrence: None)
  Receive Date: 20090626
  Receipt Date: 20090617
  Transmission Date: 20091009
  Serious: Yes (Death)
  Sender: FDA-Public Use
  Company Number: GXKR2009FR06199

PATIENT
  Age: 81 Year
  Sex: Female

DRUGS (2)
  1. AMOXICILLIN AND CLAVULANATE POTASSIUM [Suspect]
     Indication: BRONCHOPNEUMONIA
     Dosage: 2 G, TID, INTRAVENOUS
     Route: 042
  2. CEFEPIME [Suspect]
     Indication: BRONCHOPNEUMONIA
     Dosage: 2 G, BID, INTRAVENOUS
     Route: 042

REACTIONS (2)
  - NEUROTOXICITY [None]
  - STATUS EPILEPTICUS [None]
